FAERS Safety Report 6572832-5 (Version None)
Quarter: 2010Q1

REPORT INFORMATION
  Report Type: 
  Country: None (occurrence: None)
  Receive Date: 20100205
  Receipt Date: 20090520
  Transmission Date: 20100710
  Serious: Yes (Other)
  Sender: FDA-Public Use
  Company Number: DE-GENENTECH-297708

PATIENT
  Age: 87 Year
  Sex: Female

DRUGS (1)
  1. LUCENTIS [Suspect]
     Indication: CHOROIDAL NEOVASCULARISATION
     Route: 031

REACTIONS (1)
  - RETINAL PIGMENT EPITHELIAL TEAR [None]
